FAERS Safety Report 23304634 (Version 1)
Quarter: 2023Q4

REPORT INFORMATION
  Report Type: Spontaneous
  Country: US (occurrence: US)
  Receive Date: 20231218
  Receipt Date: 20231218
  Transmission Date: 20240109
  Serious: Yes (Hospitalization, Other)
  Sender: FDA-Public Use
  Company Number: US-Axellia-004998

PATIENT
  Age: 67 Year
  Sex: Male

DRUGS (5)
  1. DAPTOMYCIN [Suspect]
     Active Substance: DAPTOMYCIN
     Indication: Bacteraemia
  2. VANCOMYCIN [Suspect]
     Active Substance: VANCOMYCIN
     Indication: Product used for unknown indication
  3. MEROPENEM [Concomitant]
     Active Substance: MEROPENEM
  4. MICAFUNGIN SODIUM [Concomitant]
     Active Substance: MICAFUNGIN SODIUM
  5. DAPTOMYCIN [Suspect]
     Active Substance: DAPTOMYCIN
     Indication: Bacteraemia
     Dosage: HIGH DOSE

REACTIONS (4)
  - Meningitis enterococcal [Recovered/Resolved]
  - Treatment failure [Unknown]
  - Drug resistance [Unknown]
  - Enterococcal infection [Recovered/Resolved]
